FAERS Safety Report 24857567 (Version 2)
Quarter: 2025Q1

REPORT INFORMATION
  Report Type: Spontaneous
  Country: BR (occurrence: BR)
  Receive Date: 20250117
  Receipt Date: 20250307
  Transmission Date: 20250409
  Serious: Yes (Other)
  Sender: TEVA
  Company Number: BR-TEVA-VS-3286539

PATIENT
  Age: 53 Year
  Sex: Female
  Weight: 73 kg

DRUGS (11)
  1. AJOVY [Suspect]
     Active Substance: FREMANEZUMAB-VFRM
     Indication: Migraine
     Dosage: 225 MG EVERY MONTH
     Route: 058
     Dates: start: 2021
  2. AJOVY [Suspect]
     Active Substance: FREMANEZUMAB-VFRM
     Indication: Migraine
     Route: 065
     Dates: start: 20250119
  3. Sumaxpro [Concomitant]
     Indication: Product used for unknown indication
  4. Sumaxpro [Concomitant]
     Indication: Product used for unknown indication
  5. AMPLICTIL [Concomitant]
     Active Substance: CHLORPROMAZINE HYDROCHLORIDE
     Indication: Product used for unknown indication
  6. ERGOTAMINE TARTRATE [Concomitant]
     Active Substance: ERGOTAMINE TARTRATE
     Indication: Product used for unknown indication
  7. NARATRIPTAN HYDROCHLORIDE [Concomitant]
     Active Substance: NARATRIPTAN HYDROCHLORIDE
     Indication: Product used for unknown indication
  8. CAFFEINE\DIPYRONE\ORPHENADRINE [Concomitant]
     Active Substance: CAFFEINE\DIPYRONE\ORPHENADRINE
     Indication: Product used for unknown indication
  9. TOPIRAMATE [Concomitant]
     Active Substance: TOPIRAMATE
     Indication: Product used for unknown indication
  10. Sumax [Concomitant]
     Indication: Product used for unknown indication
  11. FLANAX CAPS [Concomitant]
     Active Substance: NAPROXEN
     Indication: Product used for unknown indication

REACTIONS (4)
  - Nasal septum deviation [Unknown]
  - Rhinorrhoea [Unknown]
  - Drug ineffective [Unknown]
  - Inability to afford medication [Unknown]
